FAERS Safety Report 8255072-3 (Version None)
Quarter: 2012Q2

REPORT INFORMATION
  Report Type: 
  Country: None (occurrence: None)
  Receive Date: 20120403
  Receipt Date: 20120326
  Transmission Date: 20120825
  Serious: Yes (Other)
  Sender: FDA-Public Use
  Company Number: US-BAYER-2012-030595

PATIENT
  Age: 82 Year
  Sex: Female
  Weight: 66 kg

DRUGS (4)
  1. ALEVE (CAPLET) [Suspect]
     Indication: BACK PAIN
     Dosage: 220 MG, QD, BOTTLE COUNT 50S
     Route: 048
     Dates: start: 20120201
  2. FISH OIL [Concomitant]
  3. VITAMIN D [Concomitant]
  4. CALCIUM CARBONATE [Concomitant]

REACTIONS (1)
  - BLOOD PRESSURE INCREASED [None]
